FAERS Safety Report 11431496 (Version 2)
Quarter: 2015Q3

REPORT INFORMATION
  Report Type: Spontaneous
  Country: IT (occurrence: IT)
  Receive Date: 20150828
  Receipt Date: 20150830
  Transmission Date: 20151125
  Serious: Yes (Hospitalization)
  Sender: FDA-Public Use
  Company Number: IT-TEVA-587899ACC

PATIENT
  Age: 75 Year
  Sex: Male

DRUGS (10)
  1. ORAMORPH - 20 MG/ML SOLUZIONE ORALE [Concomitant]
     Indication: PRODUCT USED FOR UNKNOWN INDICATION
  2. NOVONORM - 0.5 MG COMPRESSE [Concomitant]
     Indication: TYPE 2 DIABETES MELLITUS
     Dosage: .5 MG
     Route: 048
  3. LOSARTAN. [Suspect]
     Active Substance: LOSARTAN
     Indication: PRODUCT USED FOR UNKNOWN INDICATION
     Dosage: 150 MILLIGRAM DAILY; 150 MG DAILY
     Route: 048
  4. KANRENOL - 25 MG COMPRESSE - TEOFARMA S.R.L. [Suspect]
     Active Substance: CANRENOATE POTASSIUM
     Indication: PRODUCT USED FOR UNKNOWN INDICATION
     Dosage: 25 MILLIGRAM DAILY; 25 MG DAILY
     Route: 048
  5. OMEPRAZOLE. [Concomitant]
     Active Substance: OMEPRAZOLE
     Indication: PRODUCT USED FOR UNKNOWN INDICATION
     Dosage: 20 MG
     Route: 048
  6. LASIX [Suspect]
     Active Substance: FUROSEMIDE
     Indication: PRODUCT USED FOR UNKNOWN INDICATION
     Dosage: 375 MILLIGRAM DAILY; 375 MG DAILY
     Route: 048
  7. NOVONORM - 2.0 MG COMPRESSE [Concomitant]
     Indication: TYPE 2 DIABETES MELLITUS
     Dosage: 4 MG
     Route: 048
  8. LANTUS - 100 IU/ML SOLUZIONE INIETTABILE [Concomitant]
     Indication: TYPE 2 DIABETES MELLITUS
     Dosage: 10 DF
     Route: 058
  9. CARDIOASPIRIN - 100 MG COMPRESSE GASTRORESISTENTI [Concomitant]
     Active Substance: ASPIRIN
     Indication: PRODUCT USED FOR UNKNOWN INDICATION
     Dosage: 100 MG
     Route: 048
  10. SEQUACOR - 2.5 MG COMPRESSE RIVESTITE CON FILM [Concomitant]
     Indication: PRODUCT USED FOR UNKNOWN INDICATION
     Dosage: 2.5 MG
     Route: 048

REACTIONS (4)
  - Hyperkalaemia [Recovering/Resolving]
  - Dyspnoea [Unknown]
  - Dehydration [Recovering/Resolving]
  - Atrial flutter [Recovering/Resolving]

NARRATIVE: CASE EVENT DATE: 20150703
